FAERS Safety Report 7271640-X (Version None)
Quarter: 2011Q1

REPORT INFORMATION
  Report Type: 
  Country: None (occurrence: None)
  Receive Date: 20110203
  Receipt Date: 20110124
  Transmission Date: 20110831
  Serious: Yes (Hospitalization)
  Sender: FDA-Public Use
  Company Number: CA-JNJFOC-20110101232

PATIENT
  Sex: Female
  Weight: 44 kg

DRUGS (1)
  1. REMICADE [Suspect]
     Indication: RHEUMATOID ARTHRITIS
     Route: 042

REACTIONS (3)
  - ANEURYSM [None]
  - PNEUMONIA [None]
  - RHEUMATOID ARTHRITIS [None]
